FAERS Safety Report 12570556 (Version 1)
Quarter: 2016Q3

REPORT INFORMATION
  Report Type: Spontaneous
  Country: EG (occurrence: EG)
  Receive Date: 20160719
  Receipt Date: 20160719
  Transmission Date: 20161109
  Serious: Yes (Death)
  Sender: FDA-Public Use
  Company Number: EG-CELGENEUS-EGY-2016071009

PATIENT

DRUGS (2)
  1. MELPHALAN [Concomitant]
     Active Substance: MELPHALAN
     Indication: PLASMA CELL MYELOMA
     Dosage: 200MG/M2 OR 140MG/M2
     Route: 065
  2. THALIDOMIDE [Suspect]
     Active Substance: THALIDOMIDE
     Indication: PLASMA CELL MYELOMA
     Route: 048

REACTIONS (5)
  - Nephropathy toxic [Fatal]
  - Cytomegalovirus infection [Fatal]
  - Plasma cell myeloma recurrent [Unknown]
  - Pneumonia fungal [Fatal]
  - Hepatitis C [Fatal]
